FAERS Safety Report 14786897 (Version 2)
Quarter: 2018Q2

REPORT INFORMATION
  Report Type: Spontaneous
  Country: JP (occurrence: JP)
  Receive Date: 20180420
  Receipt Date: 20180427
  Transmission Date: 20180711
  Serious: Yes (Death, Other)
  Sender: FDA-Public Use
  Company Number: JP-009507513-1804JPN002242J

PATIENT
  Age: 49 Year
  Sex: Female

DRUGS (12)
  1. SYMPROIC [Concomitant]
     Active Substance: NALDEMEDINE
     Dosage: UNK
     Route: 065
  2. HEMOPORISON [Concomitant]
     Dosage: UNK
     Route: 065
  3. FENTOS [Concomitant]
     Active Substance: FENTANYL
     Dosage: UNK
     Route: 062
  4. RANMARK [Concomitant]
     Active Substance: DENOSUMAB
     Dosage: UNK
     Route: 065
  5. KEYTRUDA [Suspect]
     Active Substance: PEMBROLIZUMAB
     Indication: LUNG SQUAMOUS CELL CARCINOMA STAGE IV
     Dosage: 200 MG, Q3W
     Route: 041
     Dates: start: 20180308, end: 20180329
  6. CALFINA [Concomitant]
     Active Substance: ALFACALCIDOL
     Dosage: UNK
     Route: 065
  7. AMBROXOL HYDROCHLORIDE [Concomitant]
     Active Substance: AMBROXOL HYDROCHLORIDE
     Dosage: UNK
     Route: 065
  8. AZELNIDIPINE [Concomitant]
     Active Substance: AZELNIDIPINE
     Dosage: UNK
     Route: 065
  9. LOXOPROFEN [Concomitant]
     Active Substance: LOXOPROFEN
     Dosage: UNK
     Route: 065
  10. NOVAMIN [Concomitant]
     Dosage: UNK
     Route: 065
  11. NEXIUM [Concomitant]
     Active Substance: ESOMEPRAZOLE MAGNESIUM
     Dosage: UNK
     Route: 065
  12. AMITIZA [Concomitant]
     Active Substance: LUBIPROSTONE
     Dosage: UNK
     Route: 065

REACTIONS (1)
  - Malignant neoplasm progression [Fatal]

NARRATIVE: CASE EVENT DATE: 20180331
